FAERS Safety Report 9973608 (Version 1)
Quarter: 2014Q1

REPORT INFORMATION
  Report Type: Report from Study
  Country: BR (occurrence: BR)
  Receive Date: 20140306
  Receipt Date: 20140306
  Transmission Date: 20141002
  Serious: Yes (Death)
  Sender: FDA-Public Use
  Company Number: PHHY2014BR027401

PATIENT
  Sex: Female

DRUGS (3)
  1. LESCOL [Suspect]
     Dosage: UNK UKN, UNK
  2. NEOTIAPIM [Suspect]
  3. OPTI-FREE [Suspect]

REACTIONS (1)
  - Swelling [Fatal]
